FAERS Safety Report 14211132 (Version 4)
Quarter: 2017Q4

REPORT INFORMATION
  Report Type: Spontaneous
  Country: TW (occurrence: TW)
  Receive Date: 20171121
  Receipt Date: 20171227
  Transmission Date: 20180321
  Serious: Yes (Death, Other)
  Sender: FDA-Public Use
  Company Number: TW-GILEAD-2017-0305906

PATIENT
  Age: 69 Year
  Sex: Female

DRUGS (3)
  1. VIREAD [Suspect]
     Active Substance: TENOFOVIR DISOPROXIL FUMARATE
     Indication: HEPATITIS B REACTIVATION
     Dosage: 300 MG, UNK
     Route: 065
     Dates: start: 20170526
  2. VIREAD [Suspect]
     Active Substance: TENOFOVIR DISOPROXIL FUMARATE
     Indication: CHRONIC HEPATITIS B
     Dosage: UNK
     Route: 065
     Dates: start: 2014, end: 201703
  3. ZEFFIX [Concomitant]
     Active Substance: LAMIVUDINE
     Indication: HEPATITIS B REACTIVATION

REACTIONS (6)
  - Hepatic cirrhosis [Unknown]
  - Death [Fatal]
  - Multiple organ dysfunction syndrome [Unknown]
  - Encephalopathy [Unknown]
  - Hepatitis B reactivation [Unknown]
  - Confusional state [Unknown]

NARRATIVE: CASE EVENT DATE: 20170901
